FAERS Safety Report 5587426-8 (Version None)
Quarter: 2007Q4

REPORT INFORMATION
  Report Type: 
  Country: None (occurrence: None)
  Receive Date: 20071205
  Receipt Date: 20070713
  Transmission Date: 20080405
  Serious: Yes (Death)
  Sender: FDA-Public Use
  Company Number: HQWYE080116JUL07

PATIENT
  Age: 33 Year
  Sex: Male
  Weight: 84.44 kg

DRUGS (2)
  1. EFFEXOR XR [Suspect]
     Indication: DEPRESSION
     Dosage: ORAL
     Route: 048
  2. ALCOHOL (ETHANOL, ) [Suspect]

REACTIONS (1)
  - COMPLETED SUICIDE [None]
